FAERS Safety Report 7676685-3 (Version None)
Quarter: 2011Q3

REPORT INFORMATION
  Report Type: 
  Country: None (occurrence: None)
  Receive Date: 20110811
  Receipt Date: 20110803
  Transmission Date: 20111222
  Serious: Yes (Hospitalization, Other)
  Sender: FDA-Public Use
  Company Number: US-PFIZER INC-2011177583

PATIENT
  Sex: Female
  Weight: 59.864 kg

DRUGS (8)
  1. ACETYLSALICYLIC ACID [Concomitant]
     Dosage: UNK
  2. ATACAND HCT [Suspect]
     Indication: HYPERTENSION
     Dosage: 12.5 MG, 1X/DAY
     Route: 048
     Dates: start: 20090723
  3. METOPROLOL [Concomitant]
     Dosage: UNK
  4. METOCLOPRAMIDE [Concomitant]
     Dosage: UNK
  5. PALMAZ GENESIS [Suspect]
     Dosage: UNK
  6. CELEXA [Concomitant]
     Dosage: UNK
  7. AMLODIPINE BESYLATE/ATORVASTATIN CALCIUM [Suspect]
     Indication: HYPERLIPIDAEMIA
     Dosage: 5 MG/10 MG, 1X/DAY
     Route: 048
     Dates: start: 20090723
  8. RISPERIDONE [Concomitant]
     Dosage: UNK

REACTIONS (1)
  - HYPERTENSIVE CRISIS [None]
